FAERS Safety Report 10279547 (Version 1)
Quarter: 2014Q3

REPORT INFORMATION
  Report Type: Spontaneous
  Country: GB (occurrence: None)
  Receive Date: 20140702
  Receipt Date: 20140702
  Transmission Date: 20150326
  Serious: Yes (Other)
  Sender: FDA-Public Use
  Company Number: AUR-APL-2014-06713

PATIENT
  Sex: Female

DRUGS (2)
  1. SERTRALINE 50MG (SERTRALINE) UNKNOWN, 50MG [Suspect]
     Active Substance: SERTRALINE HYDROCHLORIDE
     Indication: ANXIETY
     Route: 048
     Dates: start: 20140414, end: 20140514
  2. SERTRALINE 50MG (SERTRALINE) UNKNOWN, 50MG [Suspect]
     Active Substance: SERTRALINE HYDROCHLORIDE
     Indication: DEPRESSION
     Route: 048
     Dates: start: 20140414, end: 20140514

REACTIONS (7)
  - Product substitution issue [None]
  - Crying [None]
  - Dysarthria [None]
  - Myalgia [None]
  - Headache [None]
  - Self injurious behaviour [None]
  - Abnormal dreams [None]
